FAERS Safety Report 18866551 (Version 1)
Quarter: 2021Q1

REPORT INFORMATION
  Report Type: Spontaneous
  Country: US (occurrence: US)
  Receive Date: 20210209
  Receipt Date: 20210209
  Transmission Date: 20210420
  Serious: Yes (Hospitalization)
  Sender: FDA-Public Use
  Company Number: None

PATIENT
  Sex: Male
  Weight: 95.82 kg

DRUGS (4)
  1. CARBOPLATIN 540MG [Suspect]
     Active Substance: CARBOPLATIN
     Dates: end: 20201215
  2. PLAVIX [Suspect]
     Active Substance: CLOPIDOGREL BISULFATE
  3. ALIMTA [Suspect]
     Active Substance: PEMETREXED DISODIUM
  4. ELIQUIS [Suspect]
     Active Substance: APIXABAN

REACTIONS (12)
  - Epistaxis [None]
  - Chest pain [None]
  - Aspartate aminotransferase increased [None]
  - Dyspnoea [None]
  - Alanine aminotransferase increased [None]
  - Pleural effusion [None]
  - Fall [None]
  - Acute respiratory failure [None]
  - Pneumonitis [None]
  - Occult blood positive [None]
  - Pneumonia [None]
  - Fibrin D dimer increased [None]

NARRATIVE: CASE EVENT DATE: 20201225
